FAERS Safety Report 7908244 (Version 7)
Quarter: 2012Q4

REPORT INFORMATION
  Report Type: 
  Country: GB (occurrence: GB)
  Receive Date: 20110421
  Receipt Date: 20121226
  Transmission Date: 20130627
  Serious: Yes (Hospitalization, Other)
  Sender: FDA-Public Use
  Company Number: PHFR2011GB02504

PATIENT
  Age: 29 Year
  Sex: Female

DRUGS (4)
  1. CLOZARIL [Suspect]
     Indication: SCHIZOPHRENIA
     Dosage: 400 mg, QD
     Route: 048
     Dates: start: 20110117
  2. CLOZARIL [Suspect]
     Dosage: 400 mg, QD
     Route: 048
     Dates: start: 20110408, end: 20110602
  3. CLOZARIL [Suspect]
     Dosage: 50 mg am and 125 mg pm
     Route: 048
     Dates: start: 20110929, end: 20120330
  4. LYMECYCLINE [Concomitant]
     Indication: ACNE
     Dosage: UNK

REACTIONS (12)
  - Mental impairment [Unknown]
  - Somatisation disorder [Unknown]
  - Malaise [Unknown]
  - Anxiety [Unknown]
  - Delirium [Unknown]
  - Disorientation [Unknown]
  - Sedation [Unknown]
  - Pain [Unknown]
  - Pain in extremity [Unknown]
  - Acne [Unknown]
  - Maternal exposure during pregnancy [Unknown]
  - Antipsychotic drug level below therapeutic [Unknown]
